FAERS Safety Report 22880530 (Version 5)
Quarter: 2024Q4

REPORT INFORMATION
  Report Type: Report from Study
  Country: CA (occurrence: CA)
  Receive Date: 20230829
  Receipt Date: 20241023
  Transmission Date: 20250115
  Serious: Yes (Other)
  Sender: VERITY PHARMACEUTICALS INC.
  Company Number: CA-VER-202300218

PATIENT
  Age: 73 Year
  Sex: Male

DRUGS (8)
  1. TRELSTAR [Suspect]
     Active Substance: TRIPTORELIN PAMOATE
     Indication: Prostate cancer
     Dosage: POWDER FOR PROLONGED-RELEASE SUSPENSION FOR INJECT, 11.25 MILLIGRAM(S), 1 IN 3 MONTH
     Route: 030
     Dates: start: 20230210, end: 20230210
  2. TRELSTAR [Suspect]
     Active Substance: TRIPTORELIN PAMOATE
     Indication: Prostate cancer
     Dosage: START DATE: 06-FEB-2024??POWDER FOR PROLONGED-RELEASE SUSPENSION FOR INJECT, 11.25 MILLIGRAM(S), 1 I
     Route: 030
     Dates: end: 20240206
  3. TRELSTAR [Suspect]
     Active Substance: TRIPTORELIN PAMOATE
     Indication: Prostate cancer
     Dosage: START DATE: 07-OCT-2024??POWDER FOR PROLONGED-RELEASE SUSPENSION FOR INJECT, 11.25MG, 1 IN 3 MONTHS
     Route: 030
     Dates: end: 20241007
  4. TRELSTAR [Suspect]
     Active Substance: TRIPTORELIN PAMOATE
     Indication: Prostate cancer
     Dosage: START DATE: 09-AUG-2023??POWDER FOR PROLONGED-RELEASE SUSPENSION FOR INJECT, 11.25 MILLIGRAM(S), 1 I
     Route: 030
     Dates: end: 20230809
  5. TRELSTAR [Suspect]
     Active Substance: TRIPTORELIN PAMOATE
     Indication: Prostate cancer
     Dosage: START DATE: 09-NOV-2023??POWDER FOR PROLONGED-RELEASE SUSPENSION FOR INJECT, 11.25 MILLIGRAM(S), 1 I
     Route: 030
     Dates: end: 20231109
  6. TRELSTAR [Suspect]
     Active Substance: TRIPTORELIN PAMOATE
     Indication: Prostate cancer
     Dosage: START DATE: 11-MAY-2023??POWDER FOR PROLONGED-RELEASE SUSPENSION FOR INJECT, 11.25 MILLIGRAM(S), 1 I
     Route: 030
     Dates: end: 20230511
  7. TRELSTAR [Suspect]
     Active Substance: TRIPTORELIN PAMOATE
     Indication: Prostate cancer
     Dosage: START DATE: 15-JUL-2024??POWDER FOR PROLONGED-RELEASE SUSPENSION FOR INJECT, 11.25MG, 1 IN 3 MONTHS
     Route: 030
     Dates: end: 20240715
  8. TRELSTAR [Suspect]
     Active Substance: TRIPTORELIN PAMOATE
     Indication: Prostate cancer
     Dosage: START DATE: 30-APR-2024??POWDER FOR PROLONGED-RELEASE SUSPENSION FOR INJECT, 11.25 MILLIGRAM(S), 1 I
     Route: 030
     Dates: end: 20240430

REACTIONS (10)
  - Abdominal pain [Not Recovered/Not Resolved]
  - Constipation [Recovering/Resolving]
  - Abdominal distension [Recovering/Resolving]
  - Blood pressure systolic increased [Unknown]
  - Flatulence [Recovering/Resolving]
  - Hot flush [Unknown]
  - Inappropriate schedule of product administration [Recovered/Resolved]
  - Dizziness [Unknown]
  - Tremor [Unknown]
  - Asthenia [Unknown]

NARRATIVE: CASE EVENT DATE: 20230210
